FAERS Safety Report 5990382-1 (Version None)
Quarter: 2008Q4

REPORT INFORMATION
  Report Type: 
  Country: None (occurrence: None)
  Receive Date: 20081209
  Receipt Date: 20081124
  Transmission Date: 20090506
  Serious: Yes (Hospitalization)
  Sender: FDA-Public Use
  Company Number: 2008S1021022

PATIENT
  Age: 49 Year
  Sex: Male

DRUGS (3)
  1. CLOZAPINE [Suspect]
     Indication: SCHIZOPHRENIA, PARANOID TYPE
     Dosage: 500 MG; DAILY
     Dates: start: 20020101
  2. FLUVOXAMINE MALEATE [Suspect]
     Indication: DRUG USE FOR UNKNOWN INDICATION
     Dosage: 50 MG
  3. ANTIPSYCHOTICS [Concomitant]

REACTIONS (2)
  - DRUG INEFFECTIVE [None]
  - DRUG LEVEL DECREASED [None]
